FAERS Safety Report 5230441-4 (Version None)
Quarter: 2007Q1

REPORT INFORMATION
  Report Type: 
  Country: None (occurrence: None)
  Receive Date: 20070201
  Receipt Date: 20070115
  Transmission Date: 20070707
  Serious: Yes (Hospitalization, Disabling)
  Sender: FDA-Public Use
  Company Number: 30818

PATIENT
  Age: 40 Year
  Sex: Male

DRUGS (3)
  1. NORFLEX [Suspect]
     Indication: BACK PAIN
     Dosage: (60 MG, SINGLE  DOSE)
     Route: 030
     Dates: start: 20061126, end: 20061126
  2. VOLTAREN [Suspect]
     Indication: BACK PAIN
     Dosage: (75 MG, SINGLE DOSE)
     Route: 030
     Dates: start: 20061126, end: 20061126
  3. BURANA [Concomitant]

REACTIONS (4)
  - HYPOAESTHESIA [None]
  - MUSCULOSKELETAL DISCOMFORT [None]
  - NEOPLASM [None]
  - PAIN [None]
